FAERS Safety Report 17806264 (Version 1)
Quarter: 2020Q2

REPORT INFORMATION
  Report Type: Spontaneous
  Country: US (occurrence: US)
  Receive Date: 20200520
  Receipt Date: 20200520
  Transmission Date: 20200714
  Serious: No
  Sender: FDA-Public Use
  Company Number: US-AUROBINDO-AUR-APL-2020-004868

PATIENT

DRUGS (2)
  1. PANTOPRAZOLE INJECTION 40 MG/VIAL [Suspect]
     Active Substance: PANTOPRAZOLE
     Indication: PRODUCT USED FOR UNKNOWN INDICATION
     Dosage: UNK
     Route: 042
  2. PANTOPRAZOLE INJECTION 40 MG/VIAL [Suspect]
     Active Substance: PANTOPRAZOLE
     Dosage: 3.09 MILLILITER
     Route: 058

REACTIONS (2)
  - Swelling [Unknown]
  - Incorrect route of product administration [Unknown]
